FAERS Safety Report 5746425-3 (Version None)
Quarter: 2008Q2

REPORT INFORMATION
  Report Type: 
  Country: None (occurrence: None)
  Receive Date: 20080522
  Receipt Date: 20080516
  Transmission Date: 20081010
  Serious: Yes (Hospitalization)
  Sender: FDA-Public Use
  Company Number: A0728327A

PATIENT
  Age: 47 Year
  Sex: Female

DRUGS (16)
  1. ZOFRAN [Suspect]
     Dosage: 4MGML AS REQUIRED
     Route: 042
     Dates: start: 20070401
  2. DIAZEPAM [Concomitant]
  3. PLAVIX [Concomitant]
  4. LIPITOR [Concomitant]
  5. ZOFRAN [Concomitant]
  6. VITAMIN D [Concomitant]
  7. ALLEGRA [Concomitant]
  8. EPIPEN [Concomitant]
  9. DARVOCET [Concomitant]
  10. DILAUDID [Concomitant]
  11. PROZAC [Concomitant]
  12. ADVAIR DISKUS 100/50 [Concomitant]
  13. UNSPECIFIED MEDICATION [Concomitant]
  14. POTASSIUM CHLORIDE [Concomitant]
  15. MG OXIDE [Concomitant]
  16. CALCIUM [Concomitant]

REACTIONS (6)
  - DRUG INEFFECTIVE [None]
  - DRUG INTOLERANCE [None]
  - GASTRITIS [None]
  - GINGIVITIS [None]
  - HYPOMAGNESAEMIA [None]
  - ORAL CANDIDIASIS [None]
